FAERS Safety Report 12602706 (Version 1)
Quarter: 2016Q3

REPORT INFORMATION
  Report Type: Spontaneous
  Country: US (occurrence: US)
  Receive Date: 20160728
  Receipt Date: 20160728
  Transmission Date: 20161109
  Serious: No
  Sender: FDA-Public Use
  Company Number: US-MYLANLABS-2015M1039987

PATIENT
  Sex: Female

DRUGS (2)
  1. VENLAFAXINE TABLETS, USP [Suspect]
     Active Substance: VENLAFAXINE HYDROCHLORIDE
     Indication: DEPRESSION
  2. VENLAFAXINE TABLETS, USP [Suspect]
     Active Substance: VENLAFAXINE HYDROCHLORIDE
     Indication: ANXIETY
     Dosage: 25 MG, TID
     Route: 048
     Dates: start: 20150910, end: 20151109

REACTIONS (4)
  - Diarrhoea [Recovered/Resolved]
  - Oral pain [Recovered/Resolved]
  - Stomatitis [Recovered/Resolved]
  - Gastrointestinal pain [Recovered/Resolved]

NARRATIVE: CASE EVENT DATE: 20151010
